FAERS Safety Report 12899912 (Version 2)
Quarter: 2016Q4

REPORT INFORMATION
  Report Type: Spontaneous
  Country: US (occurrence: US)
  Receive Date: 20161101
  Receipt Date: 20161102
  Transmission Date: 20170207
  Serious: Yes (Other)
  Sender: FDA-Public Use
  Company Number: US-BAYER-2016-206957

PATIENT
  Age: 2 Year
  Sex: Female

DRUGS (1)
  1. COPPERTONE WATER BABIES SPF 55 [Suspect]
     Active Substance: AVOBENZONE\HOMOSALATE\OCTISALATE\OCTOCRYLENE\OXYBENZONE
     Dosage: UNK
     Route: 061

REACTIONS (12)
  - Hypersensitivity [None]
  - Skin irritation [Unknown]
  - Application site pruritus [None]
  - Product quality issue [None]
  - Product physical consistency issue [None]
  - Application site burn [None]
  - Skin burning sensation [Unknown]
  - Rash [Unknown]
  - Urticaria [Unknown]
  - Erythema [Unknown]
  - Rash macular [Unknown]
  - Application site rash [None]
